FAERS Safety Report 16333365 (Version 2)
Quarter: 2020Q3

REPORT INFORMATION
  Report Type: Spontaneous
  Country: US (occurrence: US)
  Receive Date: 20190520
  Receipt Date: 20200821
  Transmission Date: 20201102
  Serious: Yes (Other)
  Sender: FDA-Public Use
  Company Number: US-GILEAD-2019-0407975

PATIENT
  Sex: Male
  Weight: 58.05 kg

DRUGS (1)
  1. ATRIPLA [Suspect]
     Active Substance: EFAVIRENZ\EMTRICITABINE\TENOFOVIR DISOPROXIL FUMARATE
     Indication: HIV INFECTION
     Dosage: UNK
     Route: 048
     Dates: start: 20080126, end: 20161230

REACTIONS (15)
  - Chronic kidney disease [Unknown]
  - Economic problem [Not Recovered/Not Resolved]
  - Sleep deficit [Unknown]
  - Bone density decreased [Unknown]
  - Emotional distress [Not Recovered/Not Resolved]
  - Back pain [Not Recovered/Not Resolved]
  - Osteoporosis [Unknown]
  - Depression [Unknown]
  - General physical health deterioration [Unknown]
  - Pain [Not Recovered/Not Resolved]
  - Quality of life decreased [Unknown]
  - Anhedonia [Not Recovered/Not Resolved]
  - Arthralgia [Not Recovered/Not Resolved]
  - Anxiety [Not Recovered/Not Resolved]
  - Renal injury [Unknown]
